FAERS Safety Report 13935924 (Version 2)
Quarter: 2017Q4

REPORT INFORMATION
  Report Type: Spontaneous
  Country: US (occurrence: US)
  Receive Date: 20170905
  Receipt Date: 20171229
  Transmission Date: 20180320
  Serious: No
  Sender: FDA-Public Use
  Company Number: US-LUNDBECK-DKLU2034092

PATIENT
  Sex: Female

DRUGS (2)
  1. NORTHERA [Suspect]
     Active Substance: DROXIDOPA
     Dosage: TITRATION COMPLETE
     Route: 065
     Dates: start: 201706
  2. NORTHERA [Suspect]
     Active Substance: DROXIDOPA
     Indication: PRODUCT USED FOR UNKNOWN INDICATION
     Dosage: SCHEDULE B AND TITRATING
     Route: 065
     Dates: start: 20170701

REACTIONS (3)
  - Drug administration error [Unknown]
  - Drug ineffective [Unknown]
  - Drug dose omission [Unknown]
